FAERS Safety Report 9251310 (Version 1)
Quarter: 2013Q2

REPORT INFORMATION
  Report Type: Spontaneous
  Country: IT (occurrence: IT)
  Receive Date: 20130424
  Receipt Date: 20130424
  Transmission Date: 20140414
  Serious: Yes (Hospitalization)
  Sender: FDA-Public Use
  Company Number: IT-PFIZER INC-2013128259

PATIENT
  Age: 46 Year
  Sex: Female
  Weight: 50 kg

DRUGS (2)
  1. IBUPROFEN [Suspect]
     Indication: INTENTIONAL OVERDOSE
     Dosage: 2400 MG, UNK
     Route: 048
     Dates: start: 20130302
  2. TAVOR [Suspect]
     Indication: INTENTIONAL OVERDOSE
     Dosage: 50 MG, UNK
     Route: 048
     Dates: start: 20130302

REACTIONS (4)
  - Drug abuse [Recovered/Resolved]
  - Injury [Unknown]
  - Agitation [Unknown]
  - Major depression [Unknown]
